FAERS Safety Report 21623547 (Version 1)
Quarter: 2022Q4

REPORT INFORMATION
  Report Type: Spontaneous
  Country: US (occurrence: US)
  Receive Date: 20221121
  Receipt Date: 20221121
  Transmission Date: 20230113
  Serious: Yes (Other)
  Sender: FDA-Public Use
  Company Number: US-INTRA-CELLULAR THERAPIES, INC.-2022ICT01600

PATIENT

DRUGS (8)
  1. CAPLYTA [Suspect]
     Active Substance: LUMATEPERONE
     Dosage: 42 MG
  2. METOPROLOL SUCCINATE [Concomitant]
     Active Substance: METOPROLOL SUCCINATE
     Dosage: 50 MG, 1X/DAY
     Route: 048
  3. TOPIRAMATE [Concomitant]
     Active Substance: TOPIRAMATE
     Dosage: 200 MG, 2X/DAY
  4. ESCITALOPRAM [Concomitant]
     Active Substance: ESCITALOPRAM OXALATE
     Dosage: 10 MG, 2X/DAY
     Route: 048
  5. RIMEGEPANT [Concomitant]
     Active Substance: RIMEGEPANT
     Dosage: 75 MG, AS NEEDED
     Route: 060
  6. QULIPTA [Concomitant]
     Active Substance: ATOGEPANT
     Dosage: 60 MG, 1X/DAY
     Route: 048
  7. BUPROPION HYDROCHLORIDE [Concomitant]
     Active Substance: BUPROPION HYDROCHLORIDE
     Dosage: 300 MG, 1X/DAY
     Route: 048
  8. NEXPLANON [Concomitant]
     Active Substance: ETONOGESTREL

REACTIONS (1)
  - Hypotension [Unknown]
